FAERS Safety Report 8474964-3 (Version None)
Quarter: 2012Q2

REPORT INFORMATION
  Report Type: 
  Country: None (occurrence: None)
  Receive Date: 20120622
  Receipt Date: 20120612
  Transmission Date: 20120825
  Serious: Yes (Hospitalization)
  Sender: FDA-Public Use
  Company Number: DSJ-2012-10641

PATIENT
  Age: 74 Year
  Sex: Male
  Weight: 58.6 kg

DRUGS (6)
  1. OLMESARTAN MEDOXOMIL [Suspect]
     Indication: ESSENTIAL HYPERTENSION
     Dosage: 10 MG, PER ORAL
     Route: 048
     Dates: start: 20100309, end: 20101205
  2. ATELEC (CILNIDIPINE) (CILNIDIPINE) [Concomitant]
  3. SIGMART (NICORANDIL) (NICORANDIL) [Concomitant]
  4. KERLONE [Concomitant]
  5. ALDACTONE A (SPIRONOLACTONE) (SPIRONOLACTONE) [Concomitant]
  6. LASIX [Concomitant]

REACTIONS (1)
  - HYPOTENSION [None]
